FAERS Safety Report 6876888-1 (Version None)
Quarter: 2010Q2

REPORT INFORMATION
  Report Type: 
  Country: None (occurrence: None)
  Receive Date: 20100616
  Receipt Date: 20100421
  Transmission Date: 20101027
  Serious: No
  Sender: FDA-Public Use
  Company Number: DSA_43020_2010

PATIENT
  Sex: Female

DRUGS (2)
  1. XENAZINE [Suspect]
     Indication: HUNTINGTON'S CHOREA
     Dosage: SEE IMAGE
     Route: 048
     Dates: start: 20100210
  2. XENAZINE [Suspect]
     Indication: TOURETTE'S DISORDER
     Dosage: SEE IMAGE
     Route: 048
     Dates: start: 20100210

REACTIONS (4)
  - ANXIETY [None]
  - DEPRESSION [None]
  - MANIA [None]
  - SOMNOLENCE [None]
